FAERS Safety Report 22607580 (Version 1)
Quarter: 2023Q2

REPORT INFORMATION
  Report Type: Report from Study
  Country: US (occurrence: US)
  Receive Date: 20230616
  Receipt Date: 20230616
  Transmission Date: 20230722
  Serious: Yes (Hospitalization, Other)
  Sender: FDA-Public Use
  Company Number: US-ACADIA PHARMACEUTICALS INC.-ACA-2023-PIM-002324

PATIENT
  Age: 83 Year
  Sex: Male

DRUGS (14)
  1. NUPLAZID [Suspect]
     Active Substance: PIMAVANSERIN TARTRATE
     Indication: Parkinson^s disease
     Dosage: 34 MILLIGRAM, QD
     Route: 048
     Dates: start: 20210817, end: 20230526
  2. LISINOPRIL [Concomitant]
     Active Substance: LISINOPRIL
  3. OMEPRAZOLE [Concomitant]
     Active Substance: OMEPRAZOLE
  4. CARVEDILOL [Concomitant]
     Active Substance: CARVEDILOL
  5. RYTARY [Concomitant]
     Active Substance: CARBIDOPA\LEVODOPA
  6. DULOXETINE [Concomitant]
     Active Substance: DULOXETINE
  7. FENOFIBRATE [Concomitant]
     Active Substance: FENOFIBRATE
  8. EZETIMIBE [Concomitant]
     Active Substance: EZETIMIBE
  9. MYRBETRIQ [Concomitant]
     Active Substance: MIRABEGRON
  10. FINASTERIDE [Concomitant]
     Active Substance: FINASTERIDE
  11. ATORVASTATIN [Concomitant]
     Active Substance: ATORVASTATIN
  12. TAMSULOSIN [Concomitant]
     Active Substance: TAMSULOSIN
  13. ASPIRIN [Concomitant]
     Active Substance: ASPIRIN
  14. VITAMIN B [Concomitant]
     Active Substance: VITAMIN B

REACTIONS (5)
  - Gastrointestinal haemorrhage [Recovered/Resolved]
  - Haemoglobin decreased [Recovered/Resolved]
  - Dysphagia [Recovered/Resolved]
  - Dyspnoea [Recovered/Resolved]
  - Flat affect [Unknown]

NARRATIVE: CASE EVENT DATE: 20230525
